FAERS Safety Report 7536666-7 (Version None)
Quarter: 2011Q2

REPORT INFORMATION
  Report Type: 
  Country: None (occurrence: None)
  Receive Date: 20110609
  Receipt Date: 20101216
  Transmission Date: 20111010
  Serious: Yes (Hospitalization)
  Sender: FDA-Public Use
  Company Number: A0903199A

PATIENT
  Age: 56 Year
  Sex: Male

DRUGS (1)
  1. AVANDIA [Suspect]
     Indication: DIABETES MELLITUS
     Dosage: 8MG PER DAY
     Route: 048
     Dates: start: 20050204, end: 20051230

REACTIONS (4)
  - PAIN [None]
  - MYOCARDIAL INFARCTION [None]
  - CARDIAC OPERATION [None]
  - STENT PLACEMENT [None]
